FAERS Safety Report 10008302 (Version 2)
Quarter: 2014Q1

REPORT INFORMATION
  Report Type: Spontaneous
  Country: US (occurrence: US)
  Receive Date: 20140313
  Receipt Date: 20140313
  Transmission Date: 20141002
  Serious: No
  Sender: FDA-Public Use
  Company Number: US-GILEAD-2013-0073405

PATIENT
  Sex: Female

DRUGS (5)
  1. LETAIRIS [Suspect]
     Indication: PRODUCT USED FOR UNKNOWN INDICATION
     Dosage: 10 MG, QD
     Dates: start: 20081124
  2. LETAIRIS [Suspect]
     Dosage: 10 MG, QD
     Dates: start: 20081113
  3. TYVASO [Concomitant]
  4. ADCIRCA [Concomitant]
  5. VENTAVIS [Concomitant]

REACTIONS (6)
  - Weight decreased [Unknown]
  - Diarrhoea [Unknown]
  - Depression [Unknown]
  - Headache [Not Recovered/Not Resolved]
  - Nausea [Unknown]
  - Oropharyngeal pain [Unknown]
